FAERS Safety Report 13839198 (Version 4)
Quarter: 2018Q3

REPORT INFORMATION
  Report Type: Report from Study
  Country: JP (occurrence: JP)
  Receive Date: 20170807
  Receipt Date: 20180808
  Transmission Date: 20181010
  Serious: Yes (Other)
  Sender: FDA-Public Use
  Company Number: JP-ROCHE-1972009

PATIENT
  Age: 69 Year
  Sex: Female

DRUGS (10)
  1. TELMISARTAN. [Concomitant]
     Active Substance: TELMISARTAN
     Indication: HYPERTENSION
     Route: 048
  2. MAGNESIUM OXIDE. [Concomitant]
     Active Substance: MAGNESIUM OXIDE
     Indication: CONSTIPATION PROPHYLAXIS
     Route: 048
  3. CAPECITABINE. [Suspect]
     Active Substance: CAPECITABINE
     Indication: METASTATIC NEOPLASM
     Route: 048
     Dates: start: 20170713, end: 20170715
  4. VARLITINIB [Suspect]
     Active Substance: VARLITINIB
     Indication: METASTATIC NEOPLASM
     Route: 048
     Dates: start: 20170713, end: 20170715
  5. MECOBALAMIN [Concomitant]
     Active Substance: METHYLCOBALAMIN
     Indication: ANAEMIA PROPHYLAXIS
     Route: 048
  6. SODIUM HYALURONATE [Concomitant]
     Active Substance: HYALURONATE SODIUM
     Indication: HYPERAEMIA
     Route: 047
  7. OFLOXACIN. [Concomitant]
     Active Substance: OFLOXACIN
     Indication: HYPERAEMIA
     Dosage: DOSAGE IS UNCERTAIN.
     Route: 047
  8. BETAMETHASONE SODIUM PHOSPHATE [Concomitant]
     Active Substance: BETAMETHASONE SODIUM PHOSPHATE
     Indication: OCULAR HYPERAEMIA
     Dosage: DOSAGE IS UNCERTAIN. ?SINGLE USE
     Route: 047
  9. FOLIC ACID. [Concomitant]
     Active Substance: FOLIC ACID
     Indication: ANAEMIA PROPHYLAXIS
     Route: 048
  10. FLUOROMETHOLONE. [Concomitant]
     Active Substance: FLUOROMETHOLONE
     Indication: HYPERAEMIA
     Route: 047

REACTIONS (1)
  - Duodenal ulcer [Not Recovered/Not Resolved]

NARRATIVE: CASE EVENT DATE: 20170718
